FAERS Safety Report 20834884 (Version 1)
Quarter: 2022Q2

REPORT INFORMATION
  Report Type: Spontaneous
  Country: US (occurrence: US)
  Receive Date: 20220516
  Receipt Date: 20220516
  Transmission Date: 20220721
  Serious: Yes (Death, Hospitalization, Other)
  Sender: FDA-Public Use
  Company Number: US-LUPIN PHARMACEUTICALS INC.-2022-06991

PATIENT
  Age: 56 Year
  Sex: Male

DRUGS (11)
  1. HYDROCORTISONE [Suspect]
     Active Substance: HYDROCORTISONE
     Indication: COVID-19
     Dosage: UNK, (DOSE RANGING FROM 400 MG TO 50 MG A DAY)
     Route: 065
  2. DEXAMETHASONE [Suspect]
     Active Substance: DEXAMETHASONE
     Indication: COVID-19
     Dosage: 6 MG, ON DAY 1
     Route: 048
  3. METHYLPREDNISOLONE [Suspect]
     Active Substance: METHYLPREDNISOLONE
     Indication: COVID-19
     Dosage: 125 MG, ON DAY 2
     Route: 042
  4. REMDESIVIR [Suspect]
     Active Substance: REMDESIVIR
     Indication: COVID-19
     Dosage: 200 MG, ON DAY 1
     Route: 042
  5. REMDESIVIR [Suspect]
     Active Substance: REMDESIVIR
     Dosage: 100 MG, ON DAY 2
     Route: 042
  6. PIPERACILLIN SODIUM\TAZOBACTAM SODIUM [Concomitant]
     Active Substance: PIPERACILLIN SODIUM\TAZOBACTAM SODIUM
     Indication: Klebsiella infection
     Dosage: 4.5 GRAM INFUSION
     Route: 042
  7. PIPERACILLIN SODIUM\TAZOBACTAM SODIUM [Concomitant]
     Active Substance: PIPERACILLIN SODIUM\TAZOBACTAM SODIUM
     Dosage: 3.375 GRAM (EVERY 8 HOURS AS AN EXTENDED INFUSION OVER 4 HOURS)
     Route: 042
  8. CEFEPIME [Concomitant]
     Active Substance: CEFEPIME HYDROCHLORIDE
     Indication: Klebsiella infection
     Dosage: 2 GRAM, BID, 2 G EVERY 12 HOURS
     Route: 065
  9. MEROPENEM [Concomitant]
     Active Substance: MEROPENEM
     Indication: Leukocytosis
     Dosage: 1 GRAM, TID
     Route: 065
  10. AVIBACTAM SODIUM\CEFTAZIDIME [Concomitant]
     Active Substance: AVIBACTAM SODIUM\CEFTAZIDIME
     Indication: Klebsiella infection
     Dosage: 2.5 GRAM, TID
     Route: 065
  11. MICAFUNGIN [Concomitant]
     Active Substance: MICAFUNGIN
     Indication: Fungal infection
     Dosage: 150 MG, QD
     Route: 065

REACTIONS (6)
  - Disseminated cryptococcosis [Fatal]
  - Multiple organ dysfunction syndrome [Unknown]
  - Retroperitoneal haematoma [Unknown]
  - Blood loss anaemia [Unknown]
  - Condition aggravated [Unknown]
  - Off label use [Unknown]
